FAERS Safety Report 6710143-5 (Version None)
Quarter: 2010Q2

REPORT INFORMATION
  Report Type: 
  Country: None (occurrence: None)
  Receive Date: 20100504
  Receipt Date: 20100430
  Transmission Date: 20101027
  Serious: Yes (Life-Threatening, Other)
  Sender: FDA-Public Use
  Company Number: PL-BRISTOL-MYERS SQUIBB COMPANY-14904304

PATIENT
  Sex: Male

DRUGS (3)
  1. REYATAZ [Suspect]
     Dosage: 2 CAPS/D; FROM 12JAN2009 300MG 1 CAPS/D; INTRAVENOUS ATAZANAVIR FOR ABOUT 4 WEEKS
     Route: 064
     Dates: start: 20080728
  2. TRUVADA [Suspect]
     Route: 064
     Dates: start: 20080728
  3. NORVIR [Suspect]
     Route: 064
     Dates: start: 20080728

REACTIONS (3)
  - CEREBRAL HAEMORRHAGE [None]
  - PNEUMONIA [None]
  - PREMATURE BABY [None]
